FAERS Safety Report 17618710 (Version 2)
Quarter: 2020Q2

REPORT INFORMATION
  Report Type: Spontaneous
  Country: US (occurrence: US)
  Receive Date: 20200402
  Receipt Date: 20200408
  Transmission Date: 20200713
  Serious: Yes (Hospitalization, Other)
  Sender: FDA-Public Use
  Company Number: US-PROCTER_AND_GAMBLE-GS20038179

PATIENT
  Age: 68 Year
  Sex: Female

DRUGS (8)
  1. LAMOTRIGINE. [Suspect]
     Active Substance: LAMOTRIGINE
     Dosage: 200 MILLIGRAM, DAILY
     Route: 048
  2. GABAPENTIN. [Suspect]
     Active Substance: GABAPENTIN
     Dosage: 1200 MILLIGRAM, 3 /DAY
     Route: 048
  3. DULOXETINE. [Suspect]
     Active Substance: DULOXETINE
     Dosage: 60 MILLIGRAM, 2 /DAY
     Route: 048
  4. TRAMADOL. [Suspect]
     Active Substance: TRAMADOL
     Dosage: 50 MILLIGRAM, 2 /DAY
     Route: 048
  5. ONDANSETRON [Suspect]
     Active Substance: ONDANSETRON
     Route: 042
  6. DEXTROMETHORPHAN AND GUAIFENSIN, UNSPECIFIED COMBINATION [Suspect]
     Active Substance: DEXTROMETHORPHAN\GUAIFENESIN
     Indication: UPPER RESPIRATORY TRACT INFECTION
     Dosage: DOSE UNKNOWN
     Route: 048
  7. MIRTAZAPINE. [Suspect]
     Active Substance: MIRTAZAPINE
     Dosage: 45 MILLIGRAM, BEDTIME
     Route: 048
  8. TRAZODONE [Suspect]
     Active Substance: TRAZODONE HYDROCHLORIDE
     Dosage: 350 MILLIGRAM, BEDTIME
     Route: 048

REACTIONS (20)
  - Asthenia [Recovering/Resolving]
  - Hyperhidrosis [Recovering/Resolving]
  - White blood cell count increased [Unknown]
  - Mucosal dryness [Recovering/Resolving]
  - Hypertonia [Recovering/Resolving]
  - Gait disturbance [Recovering/Resolving]
  - Vomiting [Recovering/Resolving]
  - Metabolic acidosis [Unknown]
  - Blood bicarbonate decreased [Unknown]
  - Clonus [Recovering/Resolving]
  - Abdominal tenderness [Recovering/Resolving]
  - Hyperreflexia [Recovering/Resolving]
  - Serotonin syndrome [Recovering/Resolving]
  - Blood glucose increased [Unknown]
  - Nausea [Recovering/Resolving]
  - Joint stiffness [Recovering/Resolving]
  - Diarrhoea [Recovering/Resolving]
  - Tachycardia [Recovering/Resolving]
  - Anion gap increased [Unknown]
  - Tremor [Recovering/Resolving]
